FAERS Safety Report 4593728-4 (Version None)
Quarter: 2005Q1

REPORT INFORMATION
  Report Type: 
  Country: None (occurrence: None)
  Receive Date: 20050224
  Receipt Date: 20041115
  Transmission Date: 20050727
  Serious: No
  Sender: FDA-Public Use
  Company Number: US-BRISTOL-MYERS SQUIBB COMPANY-12773305

PATIENT
  Age: 19 Year
  Sex: Female

DRUGS (2)
  1. EXCEDRIN (MIGRAINE) [Suspect]
  2. SUDAFED 12 HOUR [Suspect]
     Dates: start: 20041103

REACTIONS (2)
  - DIZZINESS [None]
  - HEADACHE [None]
